FAERS Safety Report 21634016 (Version 1)
Quarter: 2022Q4

REPORT INFORMATION
  Report Type: Spontaneous
  Country: CN (occurrence: CN)
  Receive Date: 20221123
  Receipt Date: 20221123
  Transmission Date: 20230112
  Serious: Yes (Life-Threatening, Other)
  Sender: FDA-Public Use
  Company Number: CN-BAYER-2022A158232

PATIENT
  Age: 73 Year
  Sex: Male
  Weight: 69 kg

DRUGS (1)
  1. CIPROFLOXACIN [Suspect]
     Active Substance: CIPROFLOXACIN
     Indication: Anti-infective therapy
     Dosage: 0.4 G, BID
     Route: 041
     Dates: start: 20221031, end: 20221101

REACTIONS (3)
  - Ventricular fibrillation [Recovering/Resolving]
  - Hypotension [Recovering/Resolving]
  - Multiple organ dysfunction syndrome [None]

NARRATIVE: CASE EVENT DATE: 20221101
